FAERS Safety Report 17487144 (Version 2)
Quarter: 2020Q1

REPORT INFORMATION
  Report Type: Spontaneous
  Country: US (occurrence: US)
  Receive Date: 20200303
  Receipt Date: 20200313
  Transmission Date: 20200409
  Serious: Yes (Other)
  Sender: FDA-Public Use
  Company Number: US-ROCHE-2559057

PATIENT
  Age: 61 Year
  Sex: Male
  Weight: 75.82 kg

DRUGS (2)
  1. OCREVUS [Suspect]
     Active Substance: OCRELIZUMAB
     Dosage: ONGOING YES
     Route: 042
     Dates: start: 201911
  2. OCREVUS [Suspect]
     Active Substance: OCRELIZUMAB
     Indication: PRIMARY PROGRESSIVE MULTIPLE SCLEROSIS
     Dosage: ONGOING NO
     Route: 042
     Dates: start: 201801, end: 201905

REACTIONS (4)
  - White blood cell count decreased [Not Recovered/Not Resolved]
  - Intentional product use issue [Unknown]
  - Urinary tract infection [Not Recovered/Not Resolved]
  - Off label use [Unknown]

NARRATIVE: CASE EVENT DATE: 201911
